FAERS Safety Report 11062961 (Version 1)
Quarter: 2015Q2

REPORT INFORMATION
  Report Type: Spontaneous
  Country: FR (occurrence: FR)
  Receive Date: 20150424
  Receipt Date: 20150424
  Transmission Date: 20150821
  Serious: Yes (Hospitalization)
  Sender: FDA-Public Use
  Company Number: FR-ALKERMES INC.-ALK-2014-003126

PATIENT

DRUGS (4)
  1. BILASTINE [Concomitant]
     Active Substance: BILASTINE
     Indication: PRODUCT USED FOR UNKNOWN INDICATION
  2. DERMACORTICOIDES [Concomitant]
     Indication: PRODUCT USED FOR UNKNOWN INDICATION
  3. NAPRELAN [Suspect]
     Active Substance: NAPROXEN SODIUM
     Indication: ARTHRALGIA
     Dosage: 750 MG, QD
     Route: 065
  4. AMOXICILLIN/CLAVULANIC ACID [Concomitant]
     Active Substance: AMOXICILLIN\CLAVULANIC ACID
     Indication: PRODUCT USED FOR UNKNOWN INDICATION

REACTIONS (6)
  - Renal failure [Recovering/Resolving]
  - Haematuria [Recovering/Resolving]
  - Livedo reticularis [Recovering/Resolving]
  - Interstitial lung disease [None]
  - Pulmonary eosinophilia [Recovering/Resolving]
  - Hepatocellular injury [Recovering/Resolving]
